FAERS Safety Report 8837731 (Version 2)
Quarter: 2013Q1

REPORT INFORMATION
  Report Type: Spontaneous
  Country: US (occurrence: US)
  Receive Date: 20121012
  Receipt Date: 20130109
  Transmission Date: 20140127
  Serious: Yes (Other)
  Sender: FDA-Public Use
  Company Number: US-ROCHE-1142675

PATIENT
  Sex: 0
  Weight: 51.25 kg

DRUGS (6)
  1. RITUXAN [Suspect]
     Indication: RHEUMATOID ARTHRITIS
     Route: 042
     Dates: start: 2004
  2. METHOTREXATE [Suspect]
     Indication: RHEUMATOID ARTHRITIS
     Route: 048
     Dates: start: 2001
  3. LEVOTHYROXINE [Concomitant]
  4. LORAZEPAM [Concomitant]
  5. FOLIC ACID [Concomitant]
  6. AVIL [Concomitant]

REACTIONS (2)
  - Borrelia test positive [Unknown]
  - Antineutrophil cytoplasmic antibody positive [Unknown]
